FAERS Safety Report 6237942-0 (Version None)
Quarter: 2009Q2

REPORT INFORMATION
  Report Type: 
  Country: None (occurrence: None)
  Receive Date: 20090622
  Receipt Date: 20090611
  Transmission Date: 20091009
  Serious: Yes (Other)
  Sender: FDA-Public Use
  Company Number: AR-TEVA-198669ISR

PATIENT
  Age: 11 Year
  Sex: Female

DRUGS (2)
  1. VALPROIC ACID SYRUP [Suspect]
     Indication: EPILEPSY
     Route: 048
  2. OXCARBAZEPINE [Concomitant]
     Indication: EPILEPSY
     Route: 048

REACTIONS (2)
  - HAEMATURIA [None]
  - PROTEINURIA [None]
